FAERS Safety Report 19731975 (Version 1)
Quarter: 2021Q3

REPORT INFORMATION
  Report Type: Report from Study
  Country: US (occurrence: US)
  Receive Date: 20210820
  Receipt Date: 20210820
  Transmission Date: 20211014
  Serious: Yes (Hospitalization)
  Sender: FDA-Public Use
  Company Number: US-BIOGEN-2021BI01040664

PATIENT
  Age: 49 Year
  Sex: Female

DRUGS (1)
  1. TECFIDERA [Suspect]
     Active Substance: DIMETHYL FUMARATE
     Indication: MULTIPLE SCLEROSIS
     Route: 065
     Dates: start: 20150702, end: 2021

REACTIONS (11)
  - Abdominal distension [Unknown]
  - Neoplasm [Unknown]
  - Cancer pain [Recovered/Resolved]
  - Ovarian cancer [Not Recovered/Not Resolved]
  - Ascites [Recovered/Resolved]
  - Motor dysfunction [Not Recovered/Not Resolved]
  - Malnutrition [Unknown]
  - Erythema [Recovered/Resolved]
  - Balance disorder [Not Recovered/Not Resolved]
  - Eating disorder [Unknown]
  - Gait disturbance [Unknown]

NARRATIVE: CASE EVENT DATE: 202005
